FAERS Safety Report 9888840 (Version 1)
Quarter: 2014Q1

REPORT INFORMATION
  Report Type: Spontaneous
  Country: US (occurrence: None)
  Receive Date: 20140210
  Receipt Date: 20140210
  Transmission Date: 20141002
  Serious: Yes (Other)
  Sender: FDA-Public Use
  Company Number: None

PATIENT
  Age: 4 Year
  Sex: Female
  Weight: 17.69 kg

DRUGS (1)
  1. TAMIFLU [Suspect]
     Indication: INFLUENZA
     Route: 048
     Dates: start: 20140110, end: 20140114

REACTIONS (5)
  - Vomiting [None]
  - Abdominal discomfort [None]
  - Anxiety [None]
  - Nightmare [None]
  - Abnormal behaviour [None]
